FAERS Safety Report 8613124-X (Version None)
Quarter: 2012Q3

REPORT INFORMATION
  Report Type: 
  Country: None (occurrence: None)
  Receive Date: 20120822
  Receipt Date: 20120730
  Transmission Date: 20120928
  Serious: Yes (Death)
  Sender: FDA-Public Use
  Company Number: US-009507513-1207USA010224

PATIENT

DRUGS (8)
  1. LIVALO [Suspect]
     Route: 048
  2. ASPIRIN [Suspect]
     Route: 048
  3. MIGLITOL [Suspect]
     Route: 048
  4. PLAVIX [Suspect]
     Route: 048
  5. MUCOSTA [Suspect]
     Route: 048
  6. AMARYL [Suspect]
     Route: 048
  7. PITAVASTATIN CALCIUM [Suspect]
     Route: 048
  8. JANUVIA [Suspect]
     Route: 048

REACTIONS (1)
  - LIVER DISORDER [None]
